FAERS Safety Report 5193818-1 (Version None)
Quarter: 2006Q4

REPORT INFORMATION
  Report Type: 
  Country: None (occurrence: None)
  Receive Date: 20061221
  Receipt Date: 20061206
  Transmission Date: 20070319
  Serious: Yes (Other)
  Sender: FDA-Public Use
  Company Number: 1-14446828

PATIENT
  Age: 57 Year
  Sex: Female
  Weight: 63.05 kg

DRUGS (7)
  1. SOLODYN [Suspect]
     Indication: ACNE
     Dosage: 1 TABLET BY MOUTH DAILY
     Dates: start: 20061114, end: 20061122
  2. RETIN A (TRETINOIN) [Concomitant]
  3. IBUPROFEN [Concomitant]
  4. PREMARIN [Concomitant]
  5. COENZYME Q10 [Concomitant]
  6. ASCORBIC ACID [Concomitant]
  7. CALCIUM [Concomitant]

REACTIONS (11)
  - COUGH [None]
  - HEADACHE [None]
  - HYPERSENSITIVITY [None]
  - INFLUENZA LIKE ILLNESS [None]
  - MALAISE [None]
  - MYALGIA [None]
  - PAIN [None]
  - PETECHIAE [None]
  - PRURITUS GENERALISED [None]
  - SELF-MEDICATION [None]
  - WHEEZING [None]
